FAERS Safety Report 15657347 (Version 2)
Quarter: 2018Q4

REPORT INFORMATION
  Report Type: Spontaneous
  Country: NL (occurrence: NL)
  Receive Date: 20181126
  Receipt Date: 20181129
  Transmission Date: 20190205
  Serious: Yes (Hospitalization, Other)
  Sender: FDA-Public Use
  Company Number: NL-PFIZER INC-2018478906

PATIENT
  Age: 69 Year
  Sex: Female

DRUGS (2)
  1. OXALIPLATIN. [Suspect]
     Active Substance: OXALIPLATIN
     Indication: ADENOCARCINOMA OF COLON
     Dosage: UNK, EVERY 3 WEEKS (ADJUVANT CHEMOTHERAPY)
  2. CAPECITABINE. [Suspect]
     Active Substance: CAPECITABINE
     Indication: ADENOCARCINOMA OF COLON
     Dosage: UNK, EVERY 3 WEEKS (ADJUVANT CHEMOTHERAPY)

REACTIONS (3)
  - Ileal ulcer [Recovered/Resolved]
  - Enteritis [Recovered/Resolved]
  - Decreased appetite [Recovered/Resolved]
